FAERS Safety Report 4393836-7 (Version None)
Quarter: 2004Q3

REPORT INFORMATION
  Report Type: 
  Country: None (occurrence: None)
  Receive Date: 20040707
  Receipt Date: 20040701
  Transmission Date: 20050211
  Serious: Yes (Hospitalization)
  Sender: FDA-Public Use
  Company Number: TCI2004A02645

PATIENT
  Age: 75 Year
  Sex: Female

DRUGS (8)
  1. LANSAP 400 (LANSOPRAZOLE, CLARITHROMYCIN, AMOXICILLIN) (PREPARATION FO [Suspect]
     Indication: HELICOBACTER INFECTION
     Dosage: 1 CARD (0.5 CARD, 2 IN  1 D)
     Route: 048
     Dates: start: 20040625, end: 20040627
  2. FERROMIA (FERROUS CITRATE) [Concomitant]
  3. CONIEL (BENIDIPINE HYDROCHLORIDE) [Concomitant]
  4. DIART (AZOSEMIDE) [Concomitant]
  5. AMARYL [Concomitant]
  6. MICARDIS [Concomitant]
  7. LIPITOR [Concomitant]
  8. NOVOLIN R (INSULIN HUMAN INJECTION, ISOPHANE) [Concomitant]

REACTIONS (4)
  - BLOOD CREATININE INCREASED [None]
  - BLOOD POTASSIUM INCREASED [None]
  - BLOOD UREA INCREASED [None]
  - RENAL DISORDER [None]
